FAERS Safety Report 8364077-3 (Version None)
Quarter: 2012Q2

REPORT INFORMATION
  Report Type: 
  Country: None (occurrence: None)
  Receive Date: 20120516
  Receipt Date: 20120308
  Transmission Date: 20120825
  Serious: Yes (Hospitalization)
  Sender: FDA-Public Use
  Company Number: US-ALEXION-A201200343

PATIENT
  Sex: Female

DRUGS (9)
  1. SOLIRIS [Suspect]
     Indication: PAROXYSMAL NOCTURNAL HAEMOGLOBINURIA
     Dosage: 600 MG, SINGLE
     Route: 042
     Dates: start: 20100211, end: 20100301
  2. NEURONTIN [Concomitant]
     Indication: NEUROLOGICAL SYMPTOM
     Dosage: UNK
  3. ELAVIL [Concomitant]
     Indication: POST STROKE DEPRESSION
     Dosage: UNK
     Route: 048
  4. SOLIRIS [Suspect]
     Dosage: 900 MG, Q2W
     Route: 042
     Dates: start: 20100312
  5. SIMVASTATIN [Concomitant]
     Indication: BLOOD CHOLESTEROL INCREASED
     Dosage: UNK
     Route: 048
  6. FISH OIL [Concomitant]
     Dosage: UNK
  7. COUMADIN [Concomitant]
     Dosage: 12.5 MG, UNK
  8. ISOSORBIDE DINITRATE [Concomitant]
     Indication: HYPERTENSION
     Dosage: UNK
     Route: 048
  9. COUMADIN [Concomitant]
     Dosage: 10 MG, UNK
     Route: 048

REACTIONS (3)
  - PYREXIA [None]
  - CELLULITIS [None]
  - OEDEMA PERIPHERAL [None]
